FAERS Safety Report 9405677 (Version 3)
Quarter: 2013Q3

REPORT INFORMATION
  Report Type: Spontaneous
  Country: US (occurrence: US)
  Receive Date: 20130717
  Receipt Date: 20130826
  Transmission Date: 20140515
  Serious: Yes (Other)
  Sender: FDA-Public Use
  Company Number: US-PFIZER INC-2013205362

PATIENT
  Age: 57 Year
  Sex: Female
  Weight: 51.7 kg

DRUGS (4)
  1. CLINDAMYCIN PHOSPHATE [Suspect]
     Indication: POSTOPERATIVE WOUND INFECTION
     Dosage: UNK, 3X/DAY
     Dates: start: 2012, end: 2012
  2. CLINDAMYCIN PHOSPHATE [Suspect]
     Indication: POSTOPERATIVE WOUND INFECTION
     Dosage: UNK, 3X/DAY
     Dates: start: 2012, end: 2012
  3. CLINDAMYCIN PHOSPHATE [Suspect]
     Indication: POSTOPERATIVE WOUND INFECTION
     Dosage: UNK, 3X/DAY
     Dates: start: 2012, end: 2012
  4. CLONAZEPAM [Concomitant]
     Indication: ANXIETY
     Dosage: UNK, 1X/DAY

REACTIONS (4)
  - Apparent death [Unknown]
  - Clostridium difficile infection [Unknown]
  - Malaise [Unknown]
  - Weight decreased [Unknown]
